FAERS Safety Report 6760214-2 (Version None)
Quarter: 2010Q2

REPORT INFORMATION
  Report Type: 
  Country: None (occurrence: None)
  Receive Date: 20100608
  Receipt Date: 20000317
  Transmission Date: 20101027
  Serious: No
  Sender: FDA-Public Use
  Company Number: 2000SUS0310

PATIENT
  Age: 29 Year
  Sex: Female

DRUGS (6)
  1. SUSTIVA [Suspect]
     Indication: HIV INFECTION
     Dosage: 600 MG AES#DOSE_FREQUENCY: DLY
     Route: 048
     Dates: start: 19980914, end: 19990301
  2. DIDANOSINE [Concomitant]
     Dosage: 300 MG AES#DOSE_FREQUENCY: DLY
     Route: 048
     Dates: start: 19980914
  3. STAVUDINE [Concomitant]
     Dosage: 80 MG AES#DOSE_FREQUENCY: DLY
     Route: 048
     Dates: start: 19980914
  4. INDINAVIR [Concomitant]
     Dosage: 2400 MG AES#DOSE_FREQUENCY: DLY
     Route: 048
  5. NELFINAVIR [Concomitant]
     Dosage: 2250 MG AES#DOSE_FREQUENCY: DLY
     Route: 048
     Dates: start: 19990311
  6. NEVIRAPINE [Concomitant]
     Dosage: 200-400 MG DLY
     Route: 048
     Dates: start: 19990301

REACTIONS (2)
  - NORMAL NEWBORN [None]
  - PREGNANCY [None]
